FAERS Safety Report 25193225 (Version 1)
Quarter: 2025Q2

REPORT INFORMATION
  Report Type: Report from Study
  Country: US (occurrence: US)
  Receive Date: 20250414
  Receipt Date: 20250414
  Transmission Date: 20250717
  Serious: Yes (Hospitalization)
  Sender: MYLAN
  Company Number: US-MYLANLABS-2025M1030726

PATIENT
  Age: 76 Year
  Sex: Female

DRUGS (20)
  1. XANAX [Suspect]
     Active Substance: ALPRAZOLAM
     Indication: Product used for unknown indication
  2. XANAX [Suspect]
     Active Substance: ALPRAZOLAM
     Route: 065
  3. XANAX [Suspect]
     Active Substance: ALPRAZOLAM
     Route: 065
  4. XANAX [Suspect]
     Active Substance: ALPRAZOLAM
  5. AUSTEDO [Concomitant]
     Active Substance: DEUTETRABENAZINE
  6. AUSTEDO [Concomitant]
     Active Substance: DEUTETRABENAZINE
  7. AUSTEDO [Concomitant]
     Active Substance: DEUTETRABENAZINE
     Route: 065
  8. AUSTEDO [Concomitant]
     Active Substance: DEUTETRABENAZINE
     Route: 065
  9. AUSTEDO [Concomitant]
     Active Substance: DEUTETRABENAZINE
  10. AUSTEDO [Concomitant]
     Active Substance: DEUTETRABENAZINE
  11. AUSTEDO [Concomitant]
     Active Substance: DEUTETRABENAZINE
     Route: 065
  12. AUSTEDO [Concomitant]
     Active Substance: DEUTETRABENAZINE
     Route: 065
  13. INGREZZA [Concomitant]
     Active Substance: VALBENAZINE DITOSYLATE
     Indication: Tardive dyskinesia
     Dosage: 80 MILLIGRAM, QD (DAILY)
     Dates: start: 20240919
  14. INGREZZA [Concomitant]
     Active Substance: VALBENAZINE DITOSYLATE
     Dosage: 80 MILLIGRAM, QD (DAILY)
     Dates: start: 20240919
  15. INGREZZA [Concomitant]
     Active Substance: VALBENAZINE DITOSYLATE
     Dosage: 80 MILLIGRAM, QD (DAILY)
     Route: 048
     Dates: start: 20240919
  16. INGREZZA [Concomitant]
     Active Substance: VALBENAZINE DITOSYLATE
     Dosage: 80 MILLIGRAM, QD (DAILY)
     Route: 048
     Dates: start: 20240919
  17. INGREZZA [Concomitant]
     Active Substance: VALBENAZINE DITOSYLATE
     Dosage: 60 MILLIGRAM, QD (DAILY)
  18. INGREZZA [Concomitant]
     Active Substance: VALBENAZINE DITOSYLATE
     Dosage: 60 MILLIGRAM, QD (DAILY)
  19. INGREZZA [Concomitant]
     Active Substance: VALBENAZINE DITOSYLATE
     Dosage: 60 MILLIGRAM, QD (DAILY)
     Route: 048
  20. INGREZZA [Concomitant]
     Active Substance: VALBENAZINE DITOSYLATE
     Dosage: 60 MILLIGRAM, QD (DAILY)
     Route: 048

REACTIONS (3)
  - Atrial fibrillation [Not Recovered/Not Resolved]
  - Overdose [Unknown]
  - Treatment noncompliance [Unknown]
